FAERS Safety Report 8833249 (Version 2)
Quarter: 2012Q4

REPORT INFORMATION
  Report Type: 
  Country: US (occurrence: US)
  Receive Date: 20121010
  Receipt Date: 20121107
  Transmission Date: 20130627
  Serious: Yes (Life-Threatening, Hospitalization)
  Sender: FDA-Public Use
  Company Number: US-GENZYME-CLOF-1002300

PATIENT
  Age: 16 Year
  Sex: Male
  Weight: 97.7 kg

DRUGS (8)
  1. CLOLAR [Suspect]
     Indication: ACUTE LYMPHOCYTIC LEUKAEMIA
     Dosage: 30 mg/m2, IV over 2 hours on days 29-33
     Route: 042
     Dates: start: 20120626, end: 20120901
  2. CYCLOPHOSPHAMIDE [Suspect]
     Indication: ACUTE LYMPHOCYTIC LEUKAEMIA
     Dosage: 1000 mg/m2, IV over 30-60mins on days 1, 29-57
     Route: 042
     Dates: start: 20120626
  3. MERCAPTOPURINE [Suspect]
     Indication: ACUTE LYMPHOCYTIC LEUKAEMIA
     Dosage: 60 mg/m2, oral days 1-14
     Route: 048
     Dates: start: 20120626
  4. CYTARABINE [Suspect]
     Indication: ACUTE LYMPHOCYTIC LEUKAEMIA
     Dosage: 75 mg/m2, IV or SQ over 15-30mins on days 1-4 and 8-11
     Dates: start: 20120626
  5. METHOTREXATE [Suspect]
     Indication: ACUTE LYMPHOCYTIC LEUKAEMIA
     Dosage: 15 mg, Intrathecal days 1,8,15 and 22
     Route: 037
     Dates: start: 20120626
  6. VINCRISTINE [Suspect]
     Indication: ACUTE LYMPHOCYTIC LEUKAEMIA
     Dosage: 1.5 mg/m2, IV over 1min on days 15,22, 43 and 50
     Route: 042
     Dates: start: 20120626
  7. PEGASPARGASE [Suspect]
     Indication: ACUTE LYMPHOCYTIC LEUKAEMIA
     Dosage: 2500 U/m2, IV over 1-2 hours on days 15 and 43
     Route: 042
     Dates: start: 20120626
  8. ETOPOSIDE [Suspect]
     Indication: ACUTE LYMPHOCYTIC LEUKAEMIA
     Dosage: 100 mg/m2, IV over 60-120 mins on day 29-33
     Route: 042
     Dates: start: 20120626

REACTIONS (3)
  - Hypomagnesaemia [Recovered/Resolved]
  - Sepsis [Recovered/Resolved]
  - Septic shock [Recovered/Resolved]
